FAERS Safety Report 8797808 (Version 1)
Quarter: 2012Q4

REPORT INFORMATION
  Report Type: Spontaneous
  Country: US (occurrence: None)
  Receive Date: 20120917
  Receipt Date: 20120917
  Transmission Date: 20130627
  Serious: Yes (Life-Threatening, Hospitalization, Other)
  Sender: FDA-Public Use
  Company Number: CRC-12-436

PATIENT
  Age: 66 Year
  Sex: Female

DRUGS (4)
  1. OXALIPLATIN [Suspect]
     Indication: COLON CANCER METASTATIC
     Dosage: 85 mg/m**2 IV over 2h
     Route: 042
     Dates: start: 201007
  2. FOLINIC ACID [Concomitant]
  3. 50-FU [Concomitant]
  4. BEVACIZUMAB [Concomitant]

REACTIONS (10)
  - Dyspnoea [None]
  - Chest pain [None]
  - Back pain [None]
  - Haematuria [None]
  - Ecchymosis [None]
  - Thrombocytopenia [None]
  - Anaemia [None]
  - Prothrombin time prolonged [None]
  - Activated partial thromboplastin time prolonged [None]
  - Disseminated intravascular coagulation [None]
